FAERS Safety Report 7158749-6 (Version None)
Quarter: 2010Q4

REPORT INFORMATION
  Report Type: 
  Country: None (occurrence: None)
  Receive Date: 20101214
  Receipt Date: 20101206
  Transmission Date: 20110411
  Serious: Yes (Hospitalization)
  Sender: FDA-Public Use
  Company Number: US-ABBOTT-10P-163-0685564-00

PATIENT
  Sex: Female

DRUGS (14)
  1. HUMIRA [Suspect]
     Indication: COLITIS ULCERATIVE
     Dates: start: 20101108, end: 20101120
  2. HUMIRA [Suspect]
     Dosage: 80 MG LOADING DOSE
  3. HUMIRA [Suspect]
  4. PREDNISONE [Concomitant]
     Indication: PRODUCT USED FOR UNKNOWN INDICATION
     Dosage: DAILY
  5. ASACOL [Concomitant]
     Indication: COLITIS
  6. VICODIN [Concomitant]
     Indication: PAIN
  7. HYDROSCYAMINE [Concomitant]
     Indication: MUSCLE SPASMS
     Dosage: SUB LIQ
  8. CRESTOR [Concomitant]
     Indication: BLOOD CHOLESTEROL
  9. ATENOLOL [Concomitant]
     Indication: BLOOD PRESSURE
  10. CLONIDINE [Concomitant]
     Indication: BLOOD PRESSURE
  11. VISTOLIC [Concomitant]
     Indication: HYPERTENSION
  12. EXFORGE [Concomitant]
     Indication: BLOOD PRESSURE
     Dosage: 5MG/320MG
  13. POTASSIUM CHLORIDE [Concomitant]
     Indication: PRODUCT USED FOR UNKNOWN INDICATION
  14. FAMOTIDINE [Concomitant]
     Indication: ULCER

REACTIONS (4)
  - COLITIS ULCERATIVE [None]
  - CYSTITIS [None]
  - PULMONARY THROMBOSIS [None]
  - THROMBOSIS [None]
